FAERS Safety Report 7509225-X (Version None)
Quarter: 2011Q2

REPORT INFORMATION
  Report Type: 
  Country: None (occurrence: None)
  Receive Date: 20110527
  Receipt Date: 20110524
  Transmission Date: 20111010
  Serious: Yes (Hospitalization)
  Sender: FDA-Public Use
  Company Number: FR-ROCHE-691777

PATIENT
  Sex: Male
  Weight: 58 kg

DRUGS (5)
  1. PEMETREXED [Suspect]
     Indication: NON-SMALL CELL LUNG CANCER
     Dosage: PERMANENTLY DISCONTINUED, DOSE FORM: 500MG, INFUSION
     Route: 042
     Dates: start: 20100106, end: 20100224
  2. BEVACIZUMAB [Suspect]
     Indication: NON-SMALL CELL LUNG CANCER
     Dosage: PERMANENTLY DISCONTINUED.DOSE FORM 100MG (B5005) AND 400 MG (B5022), INFUSION
     Route: 042
     Dates: start: 20100106, end: 20100224
  3. FOLIC ACID [Concomitant]
     Dates: start: 20100106
  4. CISPLATIN [Suspect]
     Indication: NON-SMALL CELL LUNG CANCER
     Dosage: PERMANENTLY DISCONTINUED.INFUSION
     Route: 042
     Dates: start: 20100106, end: 20100224
  5. VITAMIN B-12 [Concomitant]
     Dates: start: 20100106

REACTIONS (2)
  - RENAL FAILURE [None]
  - FEBRILE BONE MARROW APLASIA [None]
